FAERS Safety Report 10041454 (Version 1)
Quarter: 2014Q1

REPORT INFORMATION
  Report Type: Spontaneous
  Country: FR (occurrence: IT)
  Receive Date: 20140327
  Receipt Date: 20140327
  Transmission Date: 20141002
  Serious: Yes (Hospitalization)
  Sender: FDA-Public Use
  Company Number: IT-FRI-1000065783

PATIENT
  Age: 33 Year
  Sex: Female

DRUGS (5)
  1. CAMPRAL [Suspect]
     Dates: start: 20140227, end: 20140227
  2. SERTRALINE [Suspect]
     Dates: start: 20140227, end: 20140227
  3. DEPAKIN CHRONO [Suspect]
     Dates: start: 20140227, end: 20140227
  4. RISPERIDONE [Suspect]
     Dosage: 1MG/ML IN 30ML FLACON
     Dates: start: 20140227, end: 20140227
  5. FLURAZEPAM [Suspect]
     Dates: start: 20140227, end: 20140227

REACTIONS (2)
  - Psychomotor skills impaired [Recovering/Resolving]
  - Drug abuse [Recovering/Resolving]
